FAERS Safety Report 9345617 (Version 1)
Quarter: 2013Q2

REPORT INFORMATION
  Report Type: Report from Study
  Country: CA (occurrence: CA)
  Receive Date: 20130613
  Receipt Date: 20130613
  Transmission Date: 20140414
  Serious: Yes (Hospitalization)
  Sender: FDA-Public Use
  Company Number: CA-JNJFOC-20130604388

PATIENT
  Sex: Female

DRUGS (3)
  1. REMICADE [Suspect]
     Indication: COLITIS ULCERATIVE
     Route: 042
     Dates: start: 20100723
  2. FLURAZEPAM [Concomitant]
     Dosage: AS NEEDED
     Route: 065
  3. AVAPRO [Concomitant]
     Dosage: 1 CO DIE
     Route: 065

REACTIONS (1)
  - Fracture nonunion [Not Recovered/Not Resolved]
